FAERS Safety Report 5966212-0 (Version None)
Quarter: 2008Q4

REPORT INFORMATION
  Report Type: 
  Country: None (occurrence: None)
  Receive Date: 20081125
  Receipt Date: 20081112
  Transmission Date: 20090506
  Serious: Yes (Death, Hospitalization)
  Sender: FDA-Public Use
  Company Number: GB-ELI_LILLY_AND_COMPANY-GB200604000164

PATIENT
  Age: 49 Year
  Sex: Female

DRUGS (6)
  1. ZYPREXA [Suspect]
     Indication: DEPRESSION
     Dosage: 10 MG, UNK
     Route: 048
     Dates: start: 20050401
  2. ZYPREXA [Suspect]
     Dosage: 5 MG, UNK
     Route: 048
  3. ZYPREXA [Suspect]
     Dosage: 2.5 MG, UNK
     Route: 048
  4. MIRTAZAPINE [Concomitant]
     Indication: DEPRESSION
     Dosage: 60 UNK, UNK
     Route: 048
  5. CHLORPROMAZINE [Concomitant]
     Indication: ANXIETY
     Dosage: 10 MG, AS NEEDED
     Route: 048
     Dates: start: 20060131
  6. INSULIN [Concomitant]

REACTIONS (1)
  - CEREBROVASCULAR ACCIDENT [None]
